FAERS Safety Report 7996712-3 (Version None)
Quarter: 2011Q4

REPORT INFORMATION
  Report Type: 
  Country: None (occurrence: None)
  Receive Date: 20111221
  Receipt Date: 20111212
  Transmission Date: 20120403
  Serious: Yes (Other)
  Sender: FDA-Public Use
  Company Number: ES-TEVA-313501ISR

PATIENT
  Age: 73 Year
  Sex: Male

DRUGS (2)
  1. CAPECITABINE [Suspect]
     Dosage: 1650 MG/M2;
  2. OXALIPLATIN [Suspect]
     Indication: RECTAL CANCER
     Route: 042

REACTIONS (2)
  - ANGIOPATHY [None]
  - PROCTITIS [None]
